FAERS Safety Report 8234844-5 (Version None)
Quarter: 2012Q1

REPORT INFORMATION
  Report Type: 
  Country: None (occurrence: None)
  Receive Date: 20120322
  Receipt Date: 20120309
  Transmission Date: 20120608
  Serious: Yes (Hospitalization)
  Sender: FDA-Public Use
  Company Number: 1225187

PATIENT
  Age: 47 Year
  Sex: Female
  Weight: 63 kg

DRUGS (4)
  1. (ZOPHREN /009553010) [Concomitant]
  2. ATROPINE [Concomitant]
  3. LEUCOVORIN CALCIUM [Suspect]
     Indication: ADENOCARCINOMA PANCREAS
     Dosage: 68 MG MILLIGRAM(S), INTRAVENOUS
     Route: 042
     Dates: start: 20111121, end: 20120228
  4. IRINOTECAN HCL [Suspect]
     Indication: ADENOCARCINOMA PANCREAS
     Dosage: 152 MG MILLIGRAM(S), INTRAVENOUS
     Route: 042
     Dates: start: 20111121, end: 20120214

REACTIONS (6)
  - DYSPNOEA [None]
  - OXYGEN SATURATION DECREASED [None]
  - PULMONARY EMBOLISM [None]
  - CHEST PAIN [None]
  - ERYTHEMA [None]
  - HEADACHE [None]
